FAERS Safety Report 9951174 (Version 1)
Quarter: 2014Q1

REPORT INFORMATION
  Report Type: Spontaneous
  Country: PR (occurrence: PR)
  Receive Date: 20140304
  Receipt Date: 20140304
  Transmission Date: 20141002
  Serious: No
  Sender: FDA-Public Use
  Company Number: PR-ABBVIE-13P-131-1074141-00

PATIENT
  Age: 70 Year
  Sex: Male
  Weight: 88.53 kg

DRUGS (8)
  1. HUMIRA [Suspect]
     Indication: PSORIATIC ARTHROPATHY
     Route: 058
     Dates: start: 2008, end: 20130403
  2. METFORMIN [Concomitant]
     Indication: DIABETES MELLITUS
     Route: 048
     Dates: start: 1992
  3. ACTOS [Concomitant]
     Indication: DIABETES MELLITUS
     Route: 048
     Dates: start: 1992
  4. LISINOPRIL [Concomitant]
     Indication: HYPERTENSION
     Route: 048
     Dates: start: 1998
  5. AMLODIPINE [Concomitant]
     Indication: HYPERTENSION
     Route: 048
     Dates: start: 1998
  6. LIPITOR [Concomitant]
     Indication: HYPERTENSION
     Route: 048
  7. SULFASALAZINE [Concomitant]
     Indication: ARTHRITIS
     Route: 048
  8. METHOTREXATE [Concomitant]
     Indication: ARTHRITIS
     Dosage: WEEKLY
     Route: 048

REACTIONS (1)
  - Nasopharyngitis [Recovering/Resolving]
